FAERS Safety Report 10156993 (Version 2)
Quarter: 2014Q2

REPORT INFORMATION
  Report Type: Report from Study
  Country: CO (occurrence: CO)
  Receive Date: 20140507
  Receipt Date: 20140619
  Transmission Date: 20141212
  Serious: Yes (Death)
  Sender: FDA-Public Use
  Company Number: CO-SA-2014SA053232

PATIENT
  Age: 84 Year
  Sex: Female

DRUGS (2)
  1. PLAVIX [Suspect]
     Indication: VARICOSE VEIN
     Route: 048
     Dates: start: 2008, end: 20131015
  2. HIPERLIPEN [Suspect]
     Indication: DYSLIPIDAEMIA
     Route: 048
     Dates: start: 2008, end: 20131015

REACTIONS (2)
  - Cardio-respiratory arrest [Fatal]
  - Gastrointestinal ischaemia [Fatal]
